FAERS Safety Report 10048866 (Version 1)
Quarter: 2014Q1

REPORT INFORMATION
  Report Type: Report from Study
  Country: US (occurrence: US)
  Receive Date: 20140331
  Receipt Date: 20140331
  Transmission Date: 20141002
  Serious: Yes (Other)
  Sender: FDA-Public Use
  Company Number: US-ABBVIE-14P-163-1215320-00

PATIENT
  Sex: Female

DRUGS (7)
  1. HUMIRA [Suspect]
     Indication: PSORIASIS
     Dates: start: 200912
  2. HUMIRA [Suspect]
  3. OMEPRAZOLE [Concomitant]
     Indication: GASTROOESOPHAGEAL REFLUX DISEASE
     Dosage: 1-2 TIMES DAILY
  4. CYMBALTA [Concomitant]
     Indication: BIPOLAR I DISORDER
  5. VALIUM [Concomitant]
     Indication: ANXIETY
  6. PHENERGAN [Concomitant]
     Indication: NAUSEA
     Dosage: 1 TAB Q4-6H PRN
  7. METHADONE [Concomitant]
     Indication: PRODUCT USED FOR UNKNOWN INDICATION

REACTIONS (3)
  - Hernia [Unknown]
  - Blood test abnormal [Unknown]
  - Psoriasis [Recovering/Resolving]
